FAERS Safety Report 10983282 (Version 2)
Quarter: 2015Q2

REPORT INFORMATION
  Report Type: Spontaneous
  Country: US (occurrence: US)
  Receive Date: 20150403
  Receipt Date: 20150421
  Transmission Date: 20150821
  Serious: Yes (Other)
  Sender: FDA-Public Use
  Company Number: US-ASTRAZENECA-2013SE86624

PATIENT
  Age: 56 Year
  Sex: Female

DRUGS (16)
  1. BYETTA [Suspect]
     Active Substance: EXENATIDE
     Route: 065
     Dates: start: 200907
  2. SYNTHROID/LEVOXYL [Concomitant]
     Dates: start: 20120713
  3. BYETTA [Suspect]
     Active Substance: EXENATIDE
     Route: 065
     Dates: start: 20120423
  4. SIMVASTATIN. [Concomitant]
     Active Substance: SIMVASTATIN
     Dates: start: 20120713
  5. MULTIVITAMIN [Concomitant]
     Active Substance: VITAMINS
     Dates: start: 20120713
  6. BIOTIN [Concomitant]
     Active Substance: BIOTIN
     Dates: start: 20120713
  7. ASPIRIN. [Concomitant]
     Active Substance: ASPIRIN
     Dates: start: 20120713
  8. BENICAR [Concomitant]
     Active Substance: OLMESARTAN MEDOXOMIL
     Route: 065
  9. FENOFIBRATE. [Concomitant]
     Active Substance: FENOFIBRATE
     Dates: start: 20120713
  10. INVOKANA [Concomitant]
     Active Substance: CANAGLIFLOZIN
  11. FISH OIL [Concomitant]
     Active Substance: FISH OIL
     Dates: start: 20120713
  12. OLMESARTAN [Concomitant]
     Active Substance: OLMESARTAN
     Dates: start: 20120713
  13. BYETTA [Suspect]
     Active Substance: EXENATIDE
     Route: 065
     Dates: start: 20120713
  14. METFORMIN HYDROCHLORIDE. [Concomitant]
     Active Substance: METFORMIN HYDROCHLORIDE
     Dates: start: 20120817
  15. CALCIUM +VITAMIN D [Concomitant]
     Dates: start: 20120713
  16. LOSARTAN [Concomitant]
     Active Substance: LOSARTAN

REACTIONS (1)
  - Thyroid cancer [Unknown]

NARRATIVE: CASE EVENT DATE: 2011
